FAERS Safety Report 4725166-5 (Version None)
Quarter: 2005Q3

REPORT INFORMATION
  Report Type: 
  Country: None (occurrence: None)
  Receive Date: 20050721
  Receipt Date: 20050615
  Transmission Date: 20060218
  Serious: No
  Sender: FDA-Public Use
  Company Number: 2005SP001443

PATIENT
  Age: 53 Year
  Sex: Female
  Weight: 108.8633 kg

DRUGS (11)
  1. LUNESTA [Suspect]
     Indication: INSOMNIA
     Dosage: 2 MG;1X; ORAL
     Route: 048
     Dates: start: 20050613, end: 20050613
  2. METHOTREXATE [Concomitant]
  3. CYMBALTA [Concomitant]
  4. CELEXA [Concomitant]
  5. LEVOXYL [Concomitant]
  6. AMLODIPINE BESYLATE W/ [Concomitant]
  7. BENAZEPRIL HYDROCHLOR. [Concomitant]
  8. DIOVAN [Concomitant]
  9. RITALIN [Concomitant]
  10. FOLIC ACID [Concomitant]
  11. ZOFRAN [Concomitant]

REACTIONS (2)
  - NIGHTMARE [None]
  - PARADOXICAL DRUG REACTION [None]
